FAERS Safety Report 20207335 (Version 2)
Quarter: 2024Q1

REPORT INFORMATION
  Report Type: Spontaneous
  Country: US (occurrence: US)
  Receive Date: 20211220
  Receipt Date: 20240201
  Transmission Date: 20240410
  Serious: No
  Sender: FDA-Public Use
  Company Number: US-NOVEN PHARMACEUTICALS, INC.-2021US002496

PATIENT
  Sex: Female

DRUGS (1)
  1. ESTRADIOL [Suspect]
     Active Substance: ESTRADIOL
     Indication: Hysterectomy
     Dosage: UNK, UNK
     Route: 062

REACTIONS (5)
  - Application site urticaria [Unknown]
  - Application site pruritus [Unknown]
  - Application site swelling [Unknown]
  - Dermatitis contact [Unknown]
  - Rash [Unknown]
